FAERS Safety Report 9179321 (Version 1)
Quarter: 2012Q4

REPORT INFORMATION
  Report Type: 
  Country: US (occurrence: US)
  Receive Date: 20121029
  Receipt Date: 20121029
  Transmission Date: 20130627
  Serious: No
  Sender: FDA-Public Use
  Company Number: US-AMGEN-USASP2012052578

PATIENT
  Age: 76 Year
  Sex: Female
  Weight: 64.85 kg

DRUGS (22)
  1. ENBREL [Suspect]
     Indication: PRODUCT USED FOR UNKNOWN INDICATION
     Dosage: 50 mg, qwk
     Route: 058
  2. SERTRALINE                         /01011402/ [Concomitant]
     Dosage: 50 mg, UNK
  3. METHOTREXATE [Concomitant]
     Dosage: 2.5 mg, UNK
  4. PREDNISONE [Concomitant]
     Dosage: 2.5 mg, UNK
  5. LYRICA [Concomitant]
     Dosage: 300 mg, UNK
  6. LANTUS [Concomitant]
     Dosage: 100 UNK, UNK
  7. METOPROLOL TARTRATE [Concomitant]
     Dosage: 50 mg, UNK
  8. LOSARTAN HCT [Concomitant]
     Dosage: 50-12.5
  9. FENOFIBRATE [Concomitant]
     Dosage: 200 mg, UNK
  10. NOVOLOG [Concomitant]
     Dosage: 100 UNK, UNK
  11. VITAMIN E                          /00110501/ [Concomitant]
     Dosage: 1000 unit, UNK
  12. VITAMIN C                          /00008001/ [Concomitant]
     Dosage: 500 mg, UNK
  13. PRILOSEC                           /00661201/ [Concomitant]
     Dosage: 40 mg, UNK
  14. VITAMIN D3 [Concomitant]
  15. LORTAB                             /00607101/ [Concomitant]
     Dosage: 5-500 mg
  16. CALCIUM [Concomitant]
     Dosage: 500 mg, UNK
  17. FLEXERIL                           /00428402/ [Concomitant]
     Dosage: 5 mg, UNK
  18. FISH OIL [Concomitant]
  19. ZINC [Concomitant]
     Dosage: 50 mg, UNK
  20. VITAMIN B COMPLEX [Concomitant]
  21. FELODIPINE [Concomitant]
     Dosage: 5 mg, UNK
  22. SPIRONOLACTONE [Concomitant]
     Dosage: 100 mg, UNK

REACTIONS (6)
  - Neck pain [Unknown]
  - Musculoskeletal pain [Unknown]
  - Oedema peripheral [Unknown]
  - Joint swelling [Unknown]
  - Paraesthesia [Unknown]
  - Infection [Unknown]
